FAERS Safety Report 8481265 (Version 2)
Quarter: 2013Q1

REPORT INFORMATION
  Report Type: Spontaneous
  Country: US (occurrence: US)
  Receive Date: 20120329
  Receipt Date: 20130103
  Transmission Date: 20140127
  Serious: No
  Sender: FDA-Public Use
  Company Number: US-BIOGENIDEC-2012BI010490

PATIENT
  Sex: Female

DRUGS (1)
  1. TYSABRI [Suspect]
     Indication: MULTIPLE SCLEROSIS
     Route: 042
     Dates: start: 20080523

REACTIONS (6)
  - Musculoskeletal disorder [Not Recovered/Not Resolved]
  - Optic neuritis [Recovered/Resolved]
  - Asthenia [Recovered/Resolved]
  - Osteoporosis [Not Recovered/Not Resolved]
  - Multiple sclerosis [Not Recovered/Not Resolved]
  - Weight decreased [Recovered/Resolved]
